FAERS Safety Report 9837170 (Version 1)
Quarter: 2013Q4

REPORT INFORMATION
  Report Type: Spontaneous
  Country: US (occurrence: None)
  Receive Date: 20131121
  Receipt Date: 20131121
  Transmission Date: 20140711
  Serious: No
  Sender: FDA-Public Use
  Company Number: 1000049009

PATIENT
  Sex: Male

DRUGS (1)
  1. TUDORZA PRESSAIR [Suspect]
     Dosage: 400 MCG BID (400 MCG, 2 IN 1 D), RESPIRATORY (INHALATION)
     Route: 055

REACTIONS (2)
  - Paraesthesia oral [None]
  - Lip swelling [None]
